FAERS Safety Report 10083527 (Version 1)
Quarter: 2014Q2

REPORT INFORMATION
  Report Type: Spontaneous
  Country: US (occurrence: None)
  Receive Date: 20140416
  Receipt Date: 20140416
  Transmission Date: 20141212
  Serious: Yes (Disabling, Other)
  Sender: FDA-Public Use
  Company Number: None

PATIENT
  Age: 91 Year
  Sex: Female
  Weight: 48.54 kg

DRUGS (1)
  1. MORPHINE [Suspect]
     Indication: PAIN

REACTIONS (3)
  - Mental impairment [None]
  - Confusional state [None]
  - Dyskinesia [None]
